FAERS Safety Report 11192055 (Version 1)
Quarter: 2015Q2

REPORT INFORMATION
  Report Type: Spontaneous
  Country: FR (occurrence: FR)
  Receive Date: 20150616
  Receipt Date: 20150616
  Transmission Date: 20150821
  Serious: Yes (Hospitalization)
  Sender: FDA-Public Use
  Company Number: FR-PFIZER INC-2015195948

PATIENT
  Age: 13 Year
  Sex: Female

DRUGS (4)
  1. DOLIPRANE [Suspect]
     Active Substance: ACETAMINOPHEN
     Dosage: 2000 MG (4-500MG TABLETS)
     Route: 048
     Dates: start: 20150114, end: 20150114
  2. SEROPLEX [Suspect]
     Active Substance: ESCITALOPRAM OXALATE
     Dosage: 90MG (18- 5MG TABLETS)
     Route: 048
     Dates: start: 20150115, end: 20150115
  3. XANAX [Suspect]
     Active Substance: ALPRAZOLAM
     Dosage: 5 MG (20-0.25 MG, TABLETS)
     Route: 048
     Dates: start: 20150115, end: 20150115
  4. PARACETAMOL [Suspect]
     Active Substance: ACETAMINOPHEN
     Dosage: 4000 MG, (8-500MG) SINGLE
     Route: 048
     Dates: start: 20150115, end: 20150115

REACTIONS (2)
  - Malaise [Recovered/Resolved]
  - Somnolence [Recovered/Resolved]

NARRATIVE: CASE EVENT DATE: 20150115
